FAERS Safety Report 5434535-X (Version None)
Quarter: 2007Q3

REPORT INFORMATION
  Report Type: 
  Country: None (occurrence: None)
  Receive Date: 20070831
  Receipt Date: 20070823
  Transmission Date: 20080115
  Serious: Yes (Hospitalization, Other)
  Sender: FDA-Public Use
  Company Number: IT-AMGEN-UK240893

PATIENT
  Age: 54 Year
  Sex: Female

DRUGS (4)
  1. DARBEPOETIN ALFA [Suspect]
     Indication: RENAL FAILURE CHRONIC
     Route: 058
  2. ASPIRIN [Concomitant]
  3. NIFEDIPINE [Concomitant]
  4. ILOPROST [Concomitant]

REACTIONS (6)
  - APPLICATION SITE ERYTHEMA [None]
  - MYOSITIS [None]
  - OEDEMA PERIPHERAL [None]
  - PYREXIA [None]
  - RENAL FAILURE [None]
  - SWELLING FACE [None]
